FAERS Safety Report 4394958-7 (Version None)
Quarter: 2004Q3

REPORT INFORMATION
  Report Type: 
  Country: None (occurrence: None)
  Receive Date: 20040712
  Receipt Date: 20040625
  Transmission Date: 20050211
  Serious: Yes (Other)
  Sender: FDA-Public Use
  Company Number: DE-GLAXOSMITHKLINE-D0044094A

PATIENT
  Age: 36 Year
  Sex: Female

DRUGS (3)
  1. FORTUM [Suspect]
     Dosage: 3G TWICE PER DAY
     Route: 042
     Dates: start: 20040622, end: 20040625
  2. GEMCITABINE [Concomitant]
     Dosage: 200MG TWICE PER DAY
     Route: 042
     Dates: start: 20040622
  3. MULTIPLE DRUG THERAPY [Concomitant]
     Route: 065

REACTIONS (5)
  - ARTHRALGIA [None]
  - CHILLS [None]
  - CHOLESTASIS [None]
  - HEPATIC ENZYME INCREASED [None]
  - PYREXIA [None]
